FAERS Safety Report 13347453 (Version 3)
Quarter: 2017Q4

REPORT INFORMATION
  Report Type: Report from Study
  Country: FR (occurrence: FR)
  Receive Date: 20170317
  Receipt Date: 20171020
  Transmission Date: 20180320
  Serious: Yes (Death, Hospitalization, Other)
  Sender: FDA-Public Use
  Company Number: FR-SEATTLE GENETICS-2017SGN00589

PATIENT
  Age: 79 Year
  Sex: Male
  Weight: 51 kg

DRUGS (9)
  1. BRENTUXIMAB VEDOTIN [Suspect]
     Active Substance: BRENTUXIMAB VEDOTIN
     Dosage: 121 MG, UNK
     Route: 042
     Dates: start: 20170317
  2. DOXORUBICIN [Concomitant]
     Active Substance: DOXORUBICIN
     Dosage: UNK
     Route: 065
  3. BRENTUXIMAB VEDOTIN [Suspect]
     Active Substance: BRENTUXIMAB VEDOTIN
     Dosage: UNK
     Route: 042
     Dates: start: 20160218
  4. BRENTUXIMAB VEDOTIN [Suspect]
     Active Substance: BRENTUXIMAB VEDOTIN
     Indication: HODGKIN^S DISEASE
     Dosage: 119 MG, UNK
     Route: 042
     Dates: start: 20160121
  5. VINORELBINE [Concomitant]
     Active Substance: VINORELBINE\VINORELBINE TARTRATE
     Indication: PRODUCT USED FOR UNKNOWN INDICATION
     Dosage: 50 MG, UNK
     Route: 042
     Dates: start: 20160617, end: 20160722
  6. GEMCITABINE [Concomitant]
     Active Substance: GEMCITABINE\GEMCITABINE HYDROCHLORIDE
     Dosage: UNK
     Route: 065
  7. GEMCITABINE [Concomitant]
     Active Substance: GEMCITABINE\GEMCITABINE HYDROCHLORIDE
     Dosage: UNK
     Route: 065
  8. DOXORUBICIN [Concomitant]
     Active Substance: DOXORUBICIN
     Dosage: UNK
     Route: 065
  9. BRENTUXIMAB VEDOTIN [Suspect]
     Active Substance: BRENTUXIMAB VEDOTIN
     Dosage: UNK
     Route: 042
     Dates: end: 20160414

REACTIONS (18)
  - Acute pulmonary oedema [Unknown]
  - Decreased appetite [Unknown]
  - Phlebitis [Unknown]
  - Oedema peripheral [Unknown]
  - Adverse event [Unknown]
  - Pyrexia [Unknown]
  - Depression [Unknown]
  - Weight increased [Unknown]
  - Dehydration [Recovered/Resolved]
  - Asthenia [Unknown]
  - Pneumonia [Unknown]
  - Off label use [Unknown]
  - Clostridium difficile colitis [Unknown]
  - Cough [Unknown]
  - Respiratory distress [Fatal]
  - General physical health deterioration [Fatal]
  - Oxygen saturation decreased [Unknown]
  - Oral fungal infection [Unknown]

NARRATIVE: CASE EVENT DATE: 20160121
